FAERS Safety Report 17855209 (Version 2)
Quarter: 2020Q2

REPORT INFORMATION
  Report Type: Report from Study
  Country: CO (occurrence: CO)
  Receive Date: 20200603
  Receipt Date: 20200618
  Transmission Date: 20200714
  Serious: Yes (Hospitalization)
  Sender: FDA-Public Use
  Company Number: NVSC2019CO068428

PATIENT
  Sex: Female
  Weight: 45 kg

DRUGS (3)
  1. FULVESTRANT. [Suspect]
     Active Substance: FULVESTRANT
     Indication: BREAST CANCER METASTATIC
     Dosage: UNK, QMO
     Route: 065
  2. KISQALI [Suspect]
     Active Substance: RIBOCICLIB
     Indication: BREAST CANCER METASTATIC
     Dosage: 600 MG, QD
     Route: 048
     Dates: start: 20190504
  3. KISQALI [Suspect]
     Active Substance: RIBOCICLIB
     Indication: HER2 NEGATIVE BREAST CANCER

REACTIONS (8)
  - Decreased immune responsiveness [Unknown]
  - Fatigue [Unknown]
  - Depressed mood [Unknown]
  - Feeling abnormal [Unknown]
  - Malaise [Unknown]
  - Somnolence [Unknown]
  - Dyspnoea [Unknown]
  - Pain [Unknown]
